FAERS Safety Report 21400291 (Version 1)
Quarter: 2022Q4

REPORT INFORMATION
  Report Type: Spontaneous
  Country: JP (occurrence: JP)
  Receive Date: 20221002
  Receipt Date: 20221002
  Transmission Date: 20230113
  Serious: Yes (Other)
  Sender: FDA-Public Use
  Company Number: JP-DSJP-DSJ-2020-110007

PATIENT
  Age: 9 Decade
  Sex: Female

DRUGS (4)
  1. DENOSUMAB [Suspect]
     Active Substance: DENOSUMAB
     Indication: Osteoporosis
     Dosage: 60 MG, ONCE
     Route: 065
     Dates: start: 201911
  2. DENOSUMAB [Suspect]
     Active Substance: DENOSUMAB
     Dosage: 60 UNK  *SINGLE
     Route: 065
     Dates: start: 201911
  3. UNSPECIFIED INGREDIENT [Concomitant]
     Active Substance: UNSPECIFIED INGREDIENT
     Dosage: 15MG/DAY
     Route: 065
     Dates: start: 2019
  4. UNSPECIFIED INGREDIENT [Concomitant]
     Active Substance: UNSPECIFIED INGREDIENT
     Dosage: 0.8MG/DAY
     Route: 065

REACTIONS (5)
  - Colon cancer [Not Recovered/Not Resolved]
  - Blood magnesium decreased [Not Recovered/Not Resolved]
  - Bone pain [Not Recovered/Not Resolved]
  - Pelvic pain [Not Recovered/Not Resolved]
  - Blood calcium increased [Not Recovered/Not Resolved]
